FAERS Safety Report 26006690 (Version 3)
Quarter: 2025Q4

REPORT INFORMATION
  Report Type: Spontaneous
  Country: US (occurrence: US)
  Receive Date: 20251106
  Receipt Date: 20251203
  Transmission Date: 20260119
  Serious: Yes (unspecified)
  Sender: RC OUTSOURCING, LLC
  Company Number: US-RC Outsourcing, LLC-2188000

PATIENT
  Age: 93 Year
  Sex: Female

DRUGS (1)
  1. BEVACIZUMAB [Suspect]
     Active Substance: BEVACIZUMAB

REACTIONS (2)
  - Endophthalmitis [Not Recovered/Not Resolved]
  - Retinal vasculitis [Not Recovered/Not Resolved]
